FAERS Safety Report 15367079 (Version 1)
Quarter: 2018Q3

REPORT INFORMATION
  Report Type: Spontaneous
  Country: US (occurrence: US)
  Receive Date: 20180903
  Receipt Date: 20180903
  Transmission Date: 20181010
  Serious: Yes (Disabling)
  Sender: FDA-Public Use
  Company Number: None

PATIENT
  Age: 46 Year
  Sex: Female
  Weight: 60.3 kg

DRUGS (3)
  1. CIPROFLAXIN [Suspect]
     Active Substance: CIPROFLOXACIN
     Indication: SINUSITIS
     Route: 048
  2. PROBIOTIC [Concomitant]
     Active Substance: PROBIOTICS NOS
  3. SILVER [Concomitant]
     Active Substance: SILVER

REACTIONS (3)
  - Arthropathy [None]
  - Costochondritis [None]
  - Tendonitis [None]

NARRATIVE: CASE EVENT DATE: 20151015
